FAERS Safety Report 4532029-7 (Version None)
Quarter: 2004Q4

REPORT INFORMATION
  Report Type: 
  Country: None (occurrence: None)
  Receive Date: 20041220
  Receipt Date: 20040217
  Transmission Date: 20050328
  Serious: Yes (Death)
  Sender: FDA-Public Use
  Company Number: FR-GLAXOSMITHKLINE-B0323980A

PATIENT
  Age: 34 Year
  Sex: Male

DRUGS (2)
  1. ZYBAN [Suspect]
     Dosage: 150MG UNKNOWN
     Route: 048
  2. FLUANXOL [Suspect]
     Dates: start: 20020101

REACTIONS (11)
  - BRAIN CONTUSION [None]
  - CONFUSIONAL STATE [None]
  - EPISTAXIS [None]
  - FACIAL BONES FRACTURE [None]
  - FALL [None]
  - INCOHERENT [None]
  - MALAISE [None]
  - OVERDOSE [None]
  - PULMONARY OEDEMA [None]
  - SUDDEN DEATH [None]
  - TREMOR [None]
